FAERS Safety Report 7182826-7 (Version None)
Quarter: 2010Q4

REPORT INFORMATION
  Report Type: 
  Country: None (occurrence: None)
  Receive Date: 20101222
  Receipt Date: 20101214
  Transmission Date: 20110411
  Serious: Yes (Death, Hospitalization)
  Sender: FDA-Public Use
  Company Number: US-BIOGENIDEC-2010BI041470

PATIENT
  Sex: Female

DRUGS (3)
  1. TYSABRI [Suspect]
     Indication: MULTIPLE SCLEROSIS
     Route: 042
     Dates: start: 20091117, end: 20100701
  2. STEROIDS [Concomitant]
     Indication: MULTIPLE SCLEROSIS
     Dates: start: 20101001
  3. RITUXAN [Concomitant]
     Indication: MULTIPLE SCLEROSIS
     Dates: start: 20101019, end: 20101019

REACTIONS (2)
  - CLOSTRIDIAL INFECTION [None]
  - MEGACOLON [None]
